FAERS Safety Report 5422546-X (Version None)
Quarter: 2007Q3

REPORT INFORMATION
  Report Type: 
  Country: None (occurrence: None)
  Receive Date: 20070730
  Receipt Date: 20070525
  Transmission Date: 20080115
  Serious: Yes (Other)
  Sender: FDA-Public Use
  Company Number: 200711104BWH

PATIENT
  Age: 70 Year
  Sex: Female

DRUGS (2)
  1. AVELOX [Suspect]
     Dosage: ORAL
     Route: 048
     Dates: start: 20070301
  2. CELEBREX [Suspect]
     Dosage: ORAL
     Route: 048

REACTIONS (2)
  - ANAPHYLACTIC SHOCK [None]
  - PRURITUS [None]
